FAERS Safety Report 7483256-0 (Version None)
Quarter: 2011Q2

REPORT INFORMATION
  Report Type: 
  Country: None (occurrence: None)
  Receive Date: 20110517
  Receipt Date: 20110506
  Transmission Date: 20111010
  Serious: Yes (Hospitalization)
  Sender: FDA-Public Use
  Company Number: US-US-EMD SERONO, INC.-7058366

PATIENT
  Sex: Female

DRUGS (1)
  1. REBIF [Suspect]
     Indication: MULTIPLE SCLEROSIS
     Route: 058
     Dates: start: 20091028, end: 20110422

REACTIONS (5)
  - GRANULOMATOUS LIVER DISEASE [None]
  - HEPATIC FAILURE [None]
  - RENAL FAILURE ACUTE [None]
  - HEPATITIS [None]
  - CHOLECYSTECTOMY [None]
